FAERS Safety Report 8079437-8 (Version None)
Quarter: 2012Q1

REPORT INFORMATION
  Report Type: 
  Country: None (occurrence: None)
  Receive Date: 20120128
  Receipt Date: 20110824
  Transmission Date: 20120608
  Serious: No
  Sender: FDA-Public Use
  Company Number: US-ABBOTT-11P-163-0848750-00

PATIENT
  Sex: Male

DRUGS (2)
  1. HUMIRA [Suspect]
     Indication: CROHN'S DISEASE
     Route: 058
     Dates: start: 20110501
  2. IMURAN [Concomitant]
     Indication: PRODUCT USED FOR UNKNOWN INDICATION

REACTIONS (6)
  - CONSTIPATION [None]
  - ABDOMINAL PAIN [None]
  - INSOMNIA [None]
  - VOMITING [None]
  - WEIGHT DECREASED [None]
  - INCORRECT DRUG ADMINISTRATION DURATION [None]
